FAERS Safety Report 19349815 (Version 1)
Quarter: 2021Q2

REPORT INFORMATION
  Report Type: Report from Study
  Country: DE (occurrence: DE)
  Receive Date: 20210531
  Receipt Date: 20210531
  Transmission Date: 20210717
  Serious: Yes (Hospitalization)
  Sender: FDA-Public Use
  Company Number: DE-TEVA-2021-DE-1915646

PATIENT
  Age: 76 Year
  Sex: Female
  Weight: 59 kg

DRUGS (16)
  1. CARBOPLATIN. [Suspect]
     Active Substance: CARBOPLATIN
     Indication: NON-SMALL CELL LUNG CANCER
     Dosage: MG*MIN/ML
     Route: 065
     Dates: start: 20160928, end: 20161214
  2. HCT?BETA [Concomitant]
     Indication: HYPERTONIA
     Dosage: 12.5 MG
     Route: 065
  3. CARMEN [Concomitant]
     Indication: HYPERTONIA
     Dosage: 10 MG
     Route: 065
  4. INSUMAN RAPID [Concomitant]
     Active Substance: INSULIN HUMAN
     Indication: DIABETES MELLITUS
     Route: 065
  5. ASPIRIN. [Concomitant]
     Active Substance: ASPIRIN
     Indication: CEREBROVASCULAR ACCIDENT
     Dosage: 100 MG
     Route: 065
  6. DIAZEPAM?RATIOPHARM [Concomitant]
     Active Substance: DIAZEPAM
     Indication: INSOMNIA
     Dosage: 1 MG
     Route: 065
  7. ERYPO [Concomitant]
     Indication: ANAEMIA
     Route: 058
     Dates: start: 20161104, end: 20161104
  8. ISDN?RATIOPHARM [Concomitant]
     Indication: MYOCARDIAL INFARCTION
     Dosage: 40 MG
     Route: 065
  9. ABRAXANE [Suspect]
     Active Substance: PACLITAXEL
     Dosage: 100 MG/M2
     Route: 041
     Dates: start: 20160928
  10. TAVANIC [Concomitant]
     Active Substance: LEVOFLOXACIN
     Indication: PRODUCT USED FOR UNKNOWN INDICATION
     Route: 065
     Dates: start: 20161130, end: 20161213
  11. BISOPROLOL?RATIOPHARM [Concomitant]
     Active Substance: BISOPROLOL
     Indication: MYOCARDIAL INFARCTION
     Dosage: 5 MG
     Route: 065
  12. INSUMAN BASAL [Concomitant]
     Active Substance: INSULIN HUMAN
     Indication: DIABETES MELLITUS
     Route: 065
  13. MIRTAZAPIN BETA [Concomitant]
     Indication: INSOMNIA
     Dosage: 7.5 MG
     Route: 065
  14. ABRAXANE [Suspect]
     Active Substance: PACLITAXEL
     Indication: NON-SMALL CELL LUNG CANCER
     Dosage: 100 MG/M2
     Route: 041
     Dates: start: 20161109, end: 20161221
  15. DELIX [Concomitant]
     Indication: HYPERTONIA
     Dosage: 5 MG
     Route: 065
  16. PANTOZOL [Concomitant]
     Active Substance: PANTOPRAZOLE SODIUM
     Indication: DYSPEPSIA
     Dosage: 80 MG
     Route: 065

REACTIONS (1)
  - Subileus [Recovered/Resolved]

NARRATIVE: CASE EVENT DATE: 20161130
